FAERS Safety Report 5683351-2 (Version None)
Quarter: 2008Q1

REPORT INFORMATION
  Report Type: 
  Country: None (occurrence: None)
  Receive Date: 20080326
  Receipt Date: 20080314
  Transmission Date: 20080703
  Serious: No
  Sender: FDA-Public Use
  Company Number: 232299J08USA

PATIENT
  Age: 56 Year
  Sex: Female
  Weight: 99.7913 kg

DRUGS (2)
  1. REBIF [Suspect]
     Indication: MULTIPLE SCLEROSIS
     Dosage: 22 MCG, 3 IN 1 WEEKS, SUBUTANEOUS
     Route: 058
     Dates: start: 20080204
  2. LIPITOR [Concomitant]

REACTIONS (2)
  - JOINT SWELLING [None]
  - LOSS OF CONSCIOUSNESS [None]
